FAERS Safety Report 6509412-3 (Version None)
Quarter: 2009Q4

REPORT INFORMATION
  Report Type: 
  Country: None (occurrence: None)
  Receive Date: 20091210
  Receipt Date: 20090424
  Transmission Date: 20100525
  Serious: Yes (Other)
  Sender: FDA-Public Use
  Company Number: CIP09001025

PATIENT
  Age: 77 Year
  Sex: Female

DRUGS (1)
  1. ACTONEL [Suspect]
     Indication: RHEUMATOID ARTHRITIS
     Dosage: 35 MG ONCE WEEKLY, ORAL
     Route: 048

REACTIONS (2)
  - FALL [None]
  - HIP FRACTURE [None]
